FAERS Safety Report 6751143-9 (Version None)
Quarter: 2010Q2

REPORT INFORMATION
  Report Type: 
  Country: None (occurrence: None)
  Receive Date: 20100602
  Receipt Date: 20100527
  Transmission Date: 20101027
  Serious: Yes (Hospitalization)
  Sender: FDA-Public Use
  Company Number: US-JNJFOC-20100403778

PATIENT
  Sex: Female
  Weight: 80.74 kg

DRUGS (5)
  1. DURAGESIC-100 [Suspect]
     Indication: PAIN
     Route: 062
  2. DURAGESIC-100 [Suspect]
     Indication: ANALGESIC THERAPY
     Route: 062
  3. DURAGESIC-100 [Suspect]
     Route: 062
  4. DURAGESIC-100 [Suspect]
     Dosage: THE PATIENT WAS TITRATING THE DOSE BETWEEN 25MCG AND 150 MCG AS NEEDED.
     Route: 062
  5. DURAGESIC-100 [Suspect]
     Route: 062

REACTIONS (3)
  - CELLULITIS [None]
  - DRUG INEFFECTIVE [None]
  - PULMONARY EMBOLISM [None]
